FAERS Safety Report 18651937 (Version 1)
Quarter: 2020Q4

REPORT INFORMATION
  Report Type: Report from Study
  Country: CA (occurrence: CA)
  Receive Date: 20201223
  Receipt Date: 20201223
  Transmission Date: 20210114
  Serious: Yes (Other)
  Sender: FDA-Public Use
  Company Number: CA-JNJFOC-20201134046

PATIENT
  Age: 71 Year
  Sex: Male
  Weight: 120.4 kg

DRUGS (1)
  1. STELARA [Suspect]
     Active Substance: USTEKINUMAB
     Indication: CROHN^S DISEASE
     Route: 058

REACTIONS (5)
  - Eye infection [Not Recovered/Not Resolved]
  - Eye haemorrhage [Unknown]
  - Lacrimation increased [Unknown]
  - Periorbital swelling [Unknown]
  - Cataract [Unknown]

NARRATIVE: CASE EVENT DATE: 202011
